FAERS Safety Report 24735179 (Version 3)
Quarter: 2025Q3

REPORT INFORMATION
  Report Type: Spontaneous
  Country: US (occurrence: US)
  Receive Date: 20241215
  Receipt Date: 20250816
  Transmission Date: 20251020
  Serious: No
  Sender: ALEXION PHARMACEUTICALS
  Company Number: US-AstraZeneca-CH-00766360A

PATIENT
  Sex: Male

DRUGS (7)
  1. AIRSUPRA [Interacting]
     Active Substance: ALBUTEROL SULFATE\BUDESONIDE
     Route: 065
  2. FASENRA [Suspect]
     Active Substance: BENRALIZUMAB
     Route: 065
  3. BUDESONIDE [Interacting]
     Active Substance: BUDESONIDE
     Route: 065
  4. SYMBICORT [Suspect]
     Active Substance: BUDESONIDE\FORMOTEROL FUMARATE DIHYDRATE
  5. EZETIMIBE [Concomitant]
     Active Substance: EZETIMIBE
     Route: 065
  6. Getting [Concomitant]
     Route: 065
  7. METOPROLOL [Concomitant]
     Active Substance: METOPROLOL
     Route: 065

REACTIONS (8)
  - Drug ineffective [Unknown]
  - Gait disturbance [Unknown]
  - Product use issue [Unknown]
  - Drug interaction [Unknown]
  - Product label issue [Unknown]
  - Dyspnoea [Unknown]
  - Medication error [Unknown]
  - Stent placement [Unknown]
